FAERS Safety Report 11352095 (Version 1)
Quarter: 2015Q3

REPORT INFORMATION
  Report Type: Spontaneous
  Country: US (occurrence: US)
  Receive Date: 20150807
  Receipt Date: 20150807
  Transmission Date: 20151125
  Serious: No
  Sender: FDA-Public Use
  Company Number: US-JNJFOC-20150113891

PATIENT
  Age: 86 Year
  Sex: Female
  Weight: 58.97 kg

DRUGS (3)
  1. BAYER ASPIRIN [Concomitant]
     Active Substance: ASPIRIN
     Indication: CARDIAC DISORDER
     Dosage: AT BEDTIME, FOR 6 MONTHS
     Route: 065
  2. WOMENS ROGAINE [Suspect]
     Active Substance: MINOXIDIL
     Route: 061
  3. WOMENS ROGAINE [Suspect]
     Active Substance: MINOXIDIL
     Indication: ALOPECIA
     Dosage: 1 DROPPER ON THE FRONT THEN A 1/2 DROPPER TO THE BACK.
     Route: 061
     Dates: start: 20141123

REACTIONS (2)
  - Underdose [Unknown]
  - Wrong technique in product usage process [Not Recovered/Not Resolved]
